FAERS Safety Report 5375006-9 (Version None)
Quarter: 2007Q2

REPORT INFORMATION
  Report Type: 
  Country: None (occurrence: None)
  Receive Date: 20070629
  Receipt Date: 20070402
  Transmission Date: 20071010
  Serious: No
  Sender: FDA-Public Use
  Company Number: A0645580A

PATIENT
  Age: 56 Year
  Sex: Female

DRUGS (6)
  1. FLOVENT [Suspect]
     Dosage: 110MCG PER DAY
     Route: 055
     Dates: start: 20060101, end: 20060101
  2. SPIRIVA [Concomitant]
  3. ALBUTEROL [Concomitant]
  4. CARDIZEM [Concomitant]
  5. LEXAPRO [Concomitant]
  6. VALIUM [Concomitant]

REACTIONS (3)
  - SINUSITIS [None]
  - SWELLING [None]
  - TOOTH LOSS [None]
